FAERS Safety Report 23503468 (Version 1)
Quarter: 2024Q1

REPORT INFORMATION
  Report Type: Spontaneous
  Country: US (occurrence: US)
  Receive Date: 20240208
  Receipt Date: 20240208
  Transmission Date: 20240409
  Serious: Yes (Other)
  Sender: FDA-Public Use
  Company Number: US-JNJFOC-20240183208

PATIENT
  Sex: Female

DRUGS (4)
  1. RISPERDAL [Suspect]
     Active Substance: RISPERIDONE
     Indication: Product used for unknown indication
     Dosage: 1998 TO AUG-2002
     Route: 065
     Dates: start: 1998, end: 200208
  2. RISPERDAL [Suspect]
     Active Substance: RISPERIDONE
     Route: 065
  3. RISPERDAL [Suspect]
     Active Substance: RISPERIDONE
     Route: 065
  4. RISPERDAL [Suspect]
     Active Substance: RISPERIDONE
     Route: 065

REACTIONS (13)
  - Suicidal ideation [Unknown]
  - Hallucination [Unknown]
  - Homicidal ideation [Unknown]
  - Depression [Unknown]
  - Weight increased [Unknown]
  - Adverse event [Unknown]
  - Overdose [Unknown]
  - Hyperphagia [Unknown]
  - Hypersomnia [Unknown]
  - Crying [Unknown]
  - Unevaluable event [Unknown]
  - Drug intolerance [Unknown]
  - Therapy cessation [Unknown]
